FAERS Safety Report 7911826-1 (Version None)
Quarter: 2011Q4

REPORT INFORMATION
  Report Type: 
  Country: None (occurrence: None)
  Receive Date: 20111114
  Receipt Date: 20111031
  Transmission Date: 20120403
  Serious: Yes (Other)
  Sender: FDA-Public Use
  Company Number: DE-CELGENEUS-062-21880-11110114

PATIENT

DRUGS (4)
  1. DEXAMETHASONE [Concomitant]
     Indication: MYELOMA RECURRENCE
     Route: 065
  2. DEXAMETHASONE [Concomitant]
     Indication: MULTIPLE MYELOMA
  3. REVLIMID [Suspect]
     Indication: MULTIPLE MYELOMA
     Dosage: DOSE REDUCED
     Route: 048
  4. REVLIMID [Suspect]
     Indication: MYELOMA RECURRENCE
     Dosage: 25 MILLIGRAM
     Route: 048

REACTIONS (10)
  - POLYNEUROPATHY [None]
  - PNEUMONIA [None]
  - TREMOR [None]
  - CHILLS [None]
  - PANCYTOPENIA [None]
  - CATARACT [None]
  - PYREXIA [None]
  - RETINAL DEGENERATION [None]
  - OEDEMA PERIPHERAL [None]
  - COUGH [None]
